FAERS Safety Report 9608387 (Version 3)
Quarter: 2014Q1

REPORT INFORMATION
  Report Type: Report from Study
  Country: GB (occurrence: GB)
  Receive Date: 20131009
  Receipt Date: 20140127
  Transmission Date: 20141002
  Serious: Yes (Death, Hospitalization)
  Sender: FDA-Public Use
  Company Number: GB-ROCHE-1285486

PATIENT
  Age: 56 Year
  Sex: Male
  Weight: 81.4 kg

DRUGS (7)
  1. SIROLIMUS [Suspect]
     Indication: PROPHYLAXIS AGAINST TRANSPLANT REJECTION
     Route: 048
     Dates: start: 20080904, end: 20080923
  2. ASPIRIN [Concomitant]
     Route: 048
     Dates: start: 20081104
  3. NEORAL [Concomitant]
     Route: 048
     Dates: start: 20091028, end: 201301
  4. FRUSEMIDE [Concomitant]
     Route: 048
     Dates: start: 20121011
  5. COPEGUS [Concomitant]
     Indication: HEPATITIS C
     Route: 048
     Dates: start: 20121029, end: 20130721
  6. PEGASYS [Concomitant]
     Indication: HEPATITIS C
     Route: 058
     Dates: start: 20121029, end: 20130721
  7. TELAPREVIR [Concomitant]
     Indication: HEPATITIS C
     Route: 048
     Dates: start: 20121029, end: 20130721

REACTIONS (7)
  - Hepatic failure [Fatal]
  - Hepatitis C [Fatal]
  - Upper gastrointestinal haemorrhage [Fatal]
  - Bronchopneumonia [Fatal]
  - Renal failure acute [Not Recovered/Not Resolved]
  - Oesophageal candidiasis [Unknown]
  - Anaemia [Unknown]
